FAERS Safety Report 9467012 (Version 2)
Quarter: 2013Q4

REPORT INFORMATION
  Report Type: Spontaneous
  Country: US (occurrence: US)
  Receive Date: 20130820
  Receipt Date: 20131104
  Transmission Date: 20140711
  Serious: Yes (Hospitalization)
  Sender: FDA-Public Use
  Company Number: US-GLAXOSMITHKLINE-A1037482A

PATIENT
  Age: 59 Year
  Sex: Male

DRUGS (8)
  1. ADVAIR [Suspect]
     Indication: ASTHMA
     Dosage: 1PUFF TWICE PER DAY
     Route: 055
     Dates: start: 2008
  2. VENTOLIN [Suspect]
     Indication: ASTHMA
     Dosage: 2PUFF AS REQUIRED
     Route: 055
     Dates: start: 2008
  3. ZYRTEC [Concomitant]
  4. VIT D [Concomitant]
  5. HUMULIN INSULIN [Concomitant]
  6. NPH INSULIN [Concomitant]
  7. TORSEMIDE [Concomitant]
  8. LISINOPRIL [Concomitant]

REACTIONS (5)
  - Localised infection [Recovering/Resolving]
  - Fall [Recovering/Resolving]
  - Dyspnoea [Recovering/Resolving]
  - Weight decreased [Recovering/Resolving]
  - Incorrect dose administered [Recovering/Resolving]
